FAERS Safety Report 10868382 (Version 1)
Quarter: 2015Q1

REPORT INFORMATION
  Report Type: Report from Study
  Country: DE (occurrence: DE)
  Receive Date: 20150225
  Receipt Date: 20150225
  Transmission Date: 20150721
  Serious: Yes (Hospitalization)
  Sender: FDA-Public Use
  Company Number: DE-TAKEDA-2013-03489

PATIENT
  Age: 70 Year
  Sex: Male

DRUGS (4)
  1. VELCADE [Suspect]
     Active Substance: BORTEZOMIB
     Indication: PLASMA CELL MYELOMA
     Dosage: UNK
     Route: 065
     Dates: start: 200807, end: 200809
  2. COTRIM FORTE EU RHO [Concomitant]
     Dosage: UNK
     Dates: start: 20111017
  3. REVLIMID [Concomitant]
     Active Substance: LENALIDOMIDE
     Indication: PLASMA CELL MYELOMA
     Dosage: UNK
     Dates: start: 20120404
  4. CLARITHROMYCIN. [Concomitant]
     Active Substance: CLARITHROMYCIN
     Dosage: UNK
     Dates: start: 201212, end: 201301

REACTIONS (2)
  - Intervertebral disc protrusion [Recovered/Resolved]
  - Epidural lipomatosis [Recovered/Resolved]

NARRATIVE: CASE EVENT DATE: 20130212
